FAERS Safety Report 24569894 (Version 1)
Quarter: 2024Q4

REPORT INFORMATION
  Report Type: Spontaneous
  Country: AU (occurrence: AU)
  Receive Date: 20241031
  Receipt Date: 20241031
  Transmission Date: 20250114
  Serious: Yes (Other)
  Sender: GE HEALTHCARE
  Company Number: AU-GE HEALTHCARE-2024CSU012198

PATIENT
  Age: 24 Year
  Sex: Female

DRUGS (1)
  1. CLARISCAN [Suspect]
     Active Substance: GADOTERATE MEGLUMINE
     Indication: Magnetic resonance imaging pelvic
     Dosage: 10 ML, TOTAL
     Route: 065
     Dates: start: 20240508, end: 20240508

REACTIONS (5)
  - Flushing [Unknown]
  - Erythema [Unknown]
  - Cough [Unknown]
  - Dizziness [Unknown]
  - Throat irritation [Unknown]

NARRATIVE: CASE EVENT DATE: 20240508
